FAERS Safety Report 17433500 (Version 1)
Quarter: 2020Q1

REPORT INFORMATION
  Report Type: Spontaneous
  Country: US (occurrence: US)
  Receive Date: 20200219
  Receipt Date: 20200219
  Transmission Date: 20200409
  Serious: No
  Sender: FDA-Public Use
  Company Number: US-TEVA-2020-US-1186018

PATIENT
  Sex: Female

DRUGS (25)
  1. COQ10 [Concomitant]
     Active Substance: UBIDECARENONE
  2. XARELTO [Concomitant]
     Active Substance: RIVAROXABAN
  3. SELENIUM [Concomitant]
     Active Substance: SELENIUM
  4. ACETYLCYSTINE [Concomitant]
  5. VITAMIN B12 [Concomitant]
     Active Substance: CYANOCOBALAMIN
  6. TRAZODONE HYDROCHLORIDE. [Concomitant]
     Active Substance: TRAZODONE HYDROCHLORIDE
  7. OMEGA 3 [Concomitant]
     Active Substance: OMEGA-3 FATTY ACIDS
  8. RIBOFLAVIN [Concomitant]
     Active Substance: RIBOFLAVIN
  9. DHEA [Concomitant]
     Active Substance: PRASTERONE
  10. MAGNESIUM [Concomitant]
     Active Substance: MAGNESIUM
  11. MELATONIN [Concomitant]
     Active Substance: MELATONIN
  12. SYNRIBO [Suspect]
     Active Substance: OMACETAXINE MEPESUCCINATE
     Indication: CHRONIC MYELOID LEUKAEMIA
     Dosage: DOSE: 2MG/0.57ML?FREQUENCY:DAILY; 14 DAYS ON, 14 OFF
     Route: 065
     Dates: start: 20171208
  13. VITAMIN D3 [Concomitant]
     Active Substance: CHOLECALCIFEROL
  14. COLOSTRUM [Concomitant]
     Active Substance: DIETARY SUPPLEMENT
  15. VITAMIN E [Concomitant]
     Active Substance: .ALPHA.-TOCOPHEROL
  16. METHOCARBAMOL. [Concomitant]
     Active Substance: METHOCARBAMOL
  17. RESVERATROL [Concomitant]
     Active Substance: DIETARY SUPPLEMENT\RESVERATROL
  18. ARMOUR THYROID [Concomitant]
     Active Substance: THYROID, PORCINE
  19. PROBIOTIC [Concomitant]
     Active Substance: PROBIOTICS NOS
  20. VITAMIN C [Concomitant]
     Active Substance: ASCORBIC ACID
  21. WHEY PROTEIN [Concomitant]
     Active Substance: WHEY
  22. METOPROLOL SUCCINATE ER [Concomitant]
     Active Substance: METOPROLOL SUCCINATE
  23. HOMOCYSTEINE SUPPORT [Concomitant]
  24. LATANOPROST. [Concomitant]
     Active Substance: LATANOPROST
  25. MILK THISTLE [Concomitant]
     Active Substance: DIETARY SUPPLEMENT\HERBALS\MILK THISTLE

REACTIONS (2)
  - Joint swelling [Unknown]
  - Fluid retention [Unknown]
